FAERS Safety Report 10449345 (Version 3)
Quarter: 2014Q4

REPORT INFORMATION
  Report Type: Report from Study
  Country: CA (occurrence: CA)
  Receive Date: 20140912
  Receipt Date: 20141114
  Transmission Date: 20150528
  Serious: Yes (Death, Hospitalization)
  Sender: FDA-Public Use
  Company Number: PHHY2014CA101754

PATIENT
  Age: 64 Year
  Sex: Female

DRUGS (4)
  1. SANDOSTATIN LAR DEPOT [Suspect]
     Active Substance: OCTREOTIDE ACETATE
     Indication: OVARIAN CANCER
     Dosage: 20 MG, QMO
     Route: 030
     Dates: start: 20140714
  2. SANDOSTATIN [Suspect]
     Active Substance: OCTREOTIDE ACETATE
     Indication: OVARIAN CANCER
     Dosage: UNK UG, BID (FOR 14 DAYS)
     Route: 058
     Dates: start: 20140705, end: 20140719
  3. SANDOSTATIN [Suspect]
     Active Substance: OCTREOTIDE ACETATE
     Indication: OFF LABEL USE
  4. SANDOSTATIN LAR DEPOT [Suspect]
     Active Substance: OCTREOTIDE ACETATE
     Indication: OFF LABEL USE

REACTIONS (4)
  - Nausea [Unknown]
  - Blood pressure increased [Unknown]
  - Ovarian cancer [Fatal]
  - Terminal state [Unknown]

NARRATIVE: CASE EVENT DATE: 20140812
